FAERS Safety Report 16945419 (Version 6)
Quarter: 2021Q2

REPORT INFORMATION
  Report Type: Report from Study
  Country: US (occurrence: US)
  Receive Date: 20191022
  Receipt Date: 20210619
  Transmission Date: 20210716
  Serious: Yes (Other)
  Sender: FDA-Public Use
  Company Number: NVSC2019US007542

PATIENT
  Sex: Male

DRUGS (4)
  1. KYMRIAH [Suspect]
     Active Substance: TISAGENLECLEUCEL
     Indication: B-CELL TYPE ACUTE LEUKAEMIA
     Dosage: UNK, ONCE/SINGLE
     Route: 042
     Dates: start: 20181213
  2. KYMRIAH [Suspect]
     Active Substance: TISAGENLECLEUCEL
     Indication: ACUTE LYMPHOCYTIC LEUKAEMIA
     Dosage: UNK, ONCE/SINGLE
     Route: 042
     Dates: start: 20190506
  3. FLUDARABINE [Concomitant]
     Active Substance: FLUDARABINE PHOSPHATE
     Indication: CHEMOTHERAPY
     Dosage: UNK
     Route: 065
  4. CYCLOPHOSPHAMIDE. [Concomitant]
     Active Substance: CYCLOPHOSPHAMIDE
     Indication: CHEMOTHERAPY
     Dosage: UNK
     Route: 065

REACTIONS (19)
  - Hypoxia [Unknown]
  - Neurotoxicity [Recovered/Resolved]
  - Pneumonitis [Unknown]
  - Acute lymphocytic leukaemia recurrent [Unknown]
  - Stomatitis [Unknown]
  - Treatment failure [Recovered/Resolved]
  - Micrococcus infection [Unknown]
  - Cytokine release syndrome [Recovered/Resolved]
  - B-lymphocyte count abnormal [Unknown]
  - Pupillary reflex impaired [Unknown]
  - Irritability [Unknown]
  - Off label use [Unknown]
  - B-cell aplasia [Recovered/Resolved]
  - Somnolence [Unknown]
  - Fungal infection [Unknown]
  - Influenza [Unknown]
  - Hypogammaglobulinaemia [Recovered/Resolved]
  - Cheilitis [Unknown]
  - Immune effector cell-associated neurotoxicity syndrome [Recovered/Resolved]
